FAERS Safety Report 6768828-0 (Version None)
Quarter: 2010Q2

REPORT INFORMATION
  Report Type: 
  Country: None (occurrence: None)
  Receive Date: 20100611
  Receipt Date: 20100531
  Transmission Date: 20101027
  Serious: Yes (Hospitalization, Other)
  Sender: FDA-Public Use
  Company Number: 013273

PATIENT
  Age: 4 Year
  Sex: Male

DRUGS (1)
  1. LEVETIRACETAM [Suspect]
     Indication: EPILEPSY
     Dosage: (33 MG/KG-1) ; (5MG/KG INITIAL DOSE) ; (INCREASING BY 5MG/KG EVERY TWO WEEKS)

REACTIONS (1)
  - APNOEIC ATTACK [None]
